FAERS Safety Report 12078637 (Version 1)
Quarter: 2016Q1

REPORT INFORMATION
  Report Type: Spontaneous
  Country: US (occurrence: US)
  Receive Date: 20160216
  Receipt Date: 20160216
  Transmission Date: 20160526
  Serious: Yes (Other)
  Sender: FDA-Public Use
  Company Number: US-ROCHE-1710154

PATIENT
  Sex: Female

DRUGS (3)
  1. KLONOPIN [Suspect]
     Active Substance: CLONAZEPAM
     Indication: COLITIS ULCERATIVE
     Route: 065
     Dates: end: 20160209
  2. MERCAPTOPURINE. [Concomitant]
     Active Substance: MERCAPTOPURINE
     Indication: COLITIS ULCERATIVE
     Route: 065
  3. HYOSCYAMINE SULFATE. [Concomitant]
     Active Substance: HYOSCYAMINE SULFATE
     Indication: COLITIS ULCERATIVE
     Route: 065

REACTIONS (13)
  - Unevaluable event [Unknown]
  - Hypersomnia [Unknown]
  - Dysgraphia [Unknown]
  - Medication error [Unknown]
  - Dysstasia [Unknown]
  - Rectal haemorrhage [Unknown]
  - Nausea [Unknown]
  - Balance disorder [Unknown]
  - Diarrhoea [Unknown]
  - Memory impairment [Unknown]
  - Gait disturbance [Unknown]
  - Fall [Unknown]
  - Motor dysfunction [Not Recovered/Not Resolved]
